FAERS Safety Report 25765329 (Version 1)
Quarter: 2025Q3

REPORT INFORMATION
  Report Type: Spontaneous
  Country: CN (occurrence: CN)
  Receive Date: 20250905
  Receipt Date: 20250905
  Transmission Date: 20251021
  Serious: Yes (Other)
  Sender: RANBAXY
  Company Number: CN-SUN PHARMACEUTICAL INDUSTRIES INC-2025R1-525944

PATIENT
  Age: 36 Year
  Sex: Male

DRUGS (3)
  1. AMPICILLIN SODIUM\SULBACTAM SODIUM [Suspect]
     Active Substance: AMPICILLIN SODIUM\SULBACTAM SODIUM
     Indication: Endocarditis
     Route: 042
  2. DEXAMETHASONE [Suspect]
     Active Substance: DEXAMETHASONE
     Indication: Endocarditis
     Route: 065
  3. LORATADINE [Suspect]
     Active Substance: LORATADINE
     Indication: Endocarditis
     Route: 065

REACTIONS (2)
  - Condition aggravated [Unknown]
  - Rash [Recovering/Resolving]
